FAERS Safety Report 6850091-3 (Version None)
Quarter: 2010Q3

REPORT INFORMATION
  Report Type: 
  Country: None (occurrence: None)
  Receive Date: 20100716
  Receipt Date: 20071127
  Transmission Date: 20110219
  Serious: No
  Sender: FDA-Public Use
  Company Number: US-PFIZER INC-2007085710

PATIENT
  Sex: Female
  Weight: 81.8 kg

DRUGS (6)
  1. CHANTIX [Suspect]
     Indication: SMOKING CESSATION THERAPY
     Route: 048
     Dates: start: 20070401, end: 20070923
  2. GLIPIZIDE [Concomitant]
  3. METFORMIN HCL [Concomitant]
  4. SIMVASTATIN [Concomitant]
  5. PRILOSEC [Concomitant]
  6. VITAMINS [Concomitant]

REACTIONS (4)
  - DYSPEPSIA [None]
  - FLATULENCE [None]
  - NAUSEA [None]
  - VOMITING [None]
